FAERS Safety Report 21658205 (Version 1)
Quarter: 2022Q4

REPORT INFORMATION
  Report Type: Spontaneous
  Country: US (occurrence: None)
  Receive Date: 20221128
  Receipt Date: 20221128
  Transmission Date: 20230113
  Serious: Yes (Hospitalization)
  Sender: FDA-Public Use
  Company Number: None

PATIENT
  Age: 45 Year
  Sex: Female

DRUGS (1)
  1. STELARA [Suspect]
     Active Substance: USTEKINUMAB
     Indication: Crohn^s disease
     Dates: start: 20220808

REACTIONS (6)
  - Nausea [None]
  - Abdominal pain upper [None]
  - Abdominal distension [None]
  - Flatulence [None]
  - Vomiting [None]
  - Injection related reaction [None]

NARRATIVE: CASE EVENT DATE: 20220817
